FAERS Safety Report 18333216 (Version 1)
Quarter: 2020Q4

REPORT INFORMATION
  Report Type: Spontaneous
  Country: US (occurrence: US)
  Receive Date: 20201001
  Receipt Date: 20201001
  Transmission Date: 20210113
  Serious: No
  Sender: FDA-Public Use
  Company Number: US-JNJFOC-20200947888

PATIENT
  Age: 56 Year
  Sex: Male
  Weight: 95.34 kg

DRUGS (1)
  1. ZYRTEC [Suspect]
     Active Substance: CETIRIZINE HYDROCHLORIDE
     Indication: HYPERSENSITIVITY
     Dosage: 1 TABLET ONCE A DAY?LAST DRUG ADMIN: 24-SEP-2020
     Route: 048
     Dates: start: 20200914

REACTIONS (1)
  - Drug ineffective [Unknown]
